FAERS Safety Report 18149774 (Version 1)
Quarter: 2020Q3

REPORT INFORMATION
  Report Type: Spontaneous
  Country: US (occurrence: US)
  Receive Date: 20200813
  Receipt Date: 20200813
  Transmission Date: 20201103
  Serious: Yes (Hospitalization)
  Sender: FDA-Public Use
  Company Number: None

PATIENT
  Age: 29 Year
  Sex: Female
  Weight: 79.47 kg

DRUGS (8)
  1. SODIUM CHLORIDE 0.9% 500 ML INFUSION [Concomitant]
     Dates: start: 20191004, end: 20191004
  2. APREPITANT EMULSION 130 MG INJ [Concomitant]
     Dates: start: 20191004, end: 20191004
  3. PACLITAXEL. [Suspect]
     Active Substance: PACLITAXEL
     Indication: ENDOMETRIAL CANCER
     Route: 042
  4. PALONOSETRON 0.25 MG INJ [Concomitant]
     Dates: start: 20191004, end: 20191004
  5. PACLITAXEL. [Suspect]
     Active Substance: PACLITAXEL
     Indication: ENDOMETRIAL CANCER
     Route: 042
  6. DEXAMETHASONE 12 MG IV [Concomitant]
     Dates: start: 20191004, end: 20191004
  7. FAMOTIDINE 20 MG INJ [Concomitant]
     Dates: start: 20191004, end: 20191004
  8. DIPHENHYDRAMINE 50 MG INJ [Concomitant]
     Dates: start: 20191004, end: 20191004

REACTIONS (9)
  - Throat tightness [None]
  - Erythema [None]
  - Chest discomfort [None]
  - Unresponsive to stimuli [None]
  - Pruritus [None]
  - Fall [None]
  - Infusion related reaction [None]
  - Dyspnoea [None]
  - Flushing [None]

NARRATIVE: CASE EVENT DATE: 20191004
